FAERS Safety Report 15373888 (Version 1)
Quarter: 2018Q3

REPORT INFORMATION
  Report Type: Spontaneous
  Country: US (occurrence: US)
  Receive Date: 20180912
  Receipt Date: 20180912
  Transmission Date: 20181010
  Serious: No
  Sender: FDA-Public Use
  Company Number: US-CELGENEUS-USA-20180903005

PATIENT
  Sex: Female

DRUGS (3)
  1. REVLIMID [Suspect]
     Active Substance: LENALIDOMIDE
     Indication: PLASMA CELL MYELOMA
     Dosage: 10 MILLIGRAM
     Route: 048
     Dates: start: 201604
  2. REVLIMID [Suspect]
     Active Substance: LENALIDOMIDE
     Dosage: 10 MILLIGRAM
     Route: 048
     Dates: start: 20160608, end: 20180707
  3. REVLIMID [Suspect]
     Active Substance: LENALIDOMIDE
     Indication: VITAMIN D DEFICIENCY
     Dosage: 25 MILLIGRAM
     Route: 048
     Dates: start: 201508

REACTIONS (1)
  - Laboratory test abnormal [Recovered/Resolved]
